FAERS Safety Report 10593933 (Version 3)
Quarter: 2014Q4

REPORT INFORMATION
  Report Type: Spontaneous
  Country: JP (occurrence: JP)
  Receive Date: 20141119
  Receipt Date: 20141204
  Transmission Date: 20150529
  Serious: Yes (Hospitalization, Disabling)
  Sender: FDA-Public Use
  Company Number: JP-BAYER-2014-169088

PATIENT
  Age: 59 Year
  Sex: Male
  Weight: 58 kg

DRUGS (5)
  1. METHYCOBAL [Concomitant]
     Active Substance: METHYLCOBALAMIN
     Dosage: DAILY DOSE 1500 ?G
     Route: 048
  2. GLACTIV [Concomitant]
     Active Substance: SITAGLIPTIN
     Dosage: DAILY DOSE 50 MG
     Route: 048
  3. BETAFERON [Suspect]
     Active Substance: INTERFERON BETA-1B
     Indication: MULTIPLE SCLEROSIS
     Dosage: 8 MIU, QOD
     Route: 058
     Dates: start: 200604, end: 20120220
  4. TAKEPRON [Concomitant]
     Active Substance: LANSOPRAZOLE
     Dosage: DAILY DOSE 30 MG
     Route: 048
  5. RIVOTRIL [Concomitant]
     Active Substance: CLONAZEPAM
     Dosage: DAILY DOSE .5 MG
     Route: 048

REACTIONS (2)
  - Multiple sclerosis [Not Recovered/Not Resolved]
  - Dementia [Not Recovered/Not Resolved]

NARRATIVE: CASE EVENT DATE: 201111
